FAERS Safety Report 20416843 (Version 5)
Quarter: 2023Q4

REPORT INFORMATION
  Report Type: Spontaneous
  Country: US (occurrence: US)
  Receive Date: 20220202
  Receipt Date: 20231228
  Transmission Date: 20240110
  Serious: No
  Sender: FDA-Public Use
  Company Number: US-PFIZER INC-202200167858

PATIENT
  Age: 53 Year
  Sex: Male

DRUGS (2)
  1. BRAFTOVI [Suspect]
     Active Substance: ENCORAFENIB
     Dosage: TAKE 6 CAPS DAILY
     Route: 048
     Dates: start: 20230426
  2. MEKTOVI [Suspect]
     Active Substance: BINIMETINIB
     Dosage: (45 MG) BY MOUTH EVERY 12 HOURS, 3 TABLETS IN THE AM AND 3 TABLETS IN THE PM
     Route: 048
     Dates: start: 20230426

REACTIONS (1)
  - Neoplasm progression [Unknown]
